FAERS Safety Report 4756728-7 (Version None)
Quarter: 2005Q3

REPORT INFORMATION
  Report Type: 
  Country: None (occurrence: None)
  Receive Date: 20050830
  Receipt Date: 20050518
  Transmission Date: 20060218
  Serious: Yes (Hospitalization)
  Sender: FDA-Public Use
  Company Number: US-MERCK-0505USA02272

PATIENT
  Age: 66 Year
  Sex: Male
  Weight: 73 kg

DRUGS (8)
  1. VIOXX [Suspect]
     Indication: ARTHRITIS
     Route: 048
     Dates: start: 20000221, end: 20040714
  2. ZETIA [Concomitant]
     Route: 048
     Dates: end: 20040701
  3. ZOCOR [Concomitant]
     Route: 048
     Dates: start: 19980112, end: 20000812
  4. ATENOLOL [Concomitant]
     Route: 065
     Dates: start: 19980112, end: 20000807
  5. COUMADIN [Concomitant]
     Route: 065
     Dates: start: 20000314, end: 20000514
  6. PRILOSEC [Concomitant]
     Indication: GASTROOESOPHAGEAL REFLUX DISEASE
     Route: 065
  7. COSOPT [Concomitant]
     Route: 065
  8. XALATAN [Concomitant]
     Indication: GLAUCOMA
     Route: 065

REACTIONS (4)
  - ATRIAL FIBRILLATION [None]
  - CARDIAC FAILURE CONGESTIVE [None]
  - CEREBROVASCULAR ACCIDENT [None]
  - MYOCARDIAL INFARCTION [None]
